FAERS Safety Report 18777178 (Version 1)
Quarter: 2021Q1

REPORT INFORMATION
  Report Type: Spontaneous
  Country: ET (occurrence: ET)
  Receive Date: 20210122
  Receipt Date: 20210122
  Transmission Date: 20210419
  Serious: Yes (Hospitalization, Other)
  Sender: FDA-Public Use
  Company Number: ET-ALLERGAN-2103743US

PATIENT
  Sex: Female

DRUGS (1)
  1. DEX UNK [Suspect]
     Active Substance: UNSPECIFIED INGREDIENT
     Indication: PRODUCT USED FOR UNKNOWN INDICATION
     Dosage: UNK
     Route: 047
     Dates: start: 2019

REACTIONS (3)
  - Keratitis bacterial [Recovered/Resolved]
  - Stitch abscess [Recovered/Resolved]
  - Klebsiella infection [Recovered/Resolved]

NARRATIVE: CASE EVENT DATE: 2019
